FAERS Safety Report 8033380-9 (Version None)
Quarter: 2012Q1

REPORT INFORMATION
  Report Type: 
  Country: None (occurrence: None)
  Receive Date: 20120110
  Receipt Date: 20120104
  Transmission Date: 20120608
  Serious: Yes (Life-Threatening, Hospitalization, Other)
  Sender: FDA-Public Use
  Company Number: PHHO2010PL14730

PATIENT
  Sex: Male
  Weight: 96 kg

DRUGS (20)
  1. POTASSIUM CHLORIDE [Suspect]
     Dosage: UNK
     Dates: start: 20110429
  2. RAMIPRIL [Suspect]
     Dosage: UNK
     Dates: start: 20110429
  3. ATORVASTATIN [Concomitant]
  4. BLINDED ALISKIREN [Suspect]
     Dosage: UNK
     Route: 048
     Dates: start: 20110831, end: 20120103
  5. TRIMETAZIDINE [Concomitant]
  6. ENALAPRIL MALEATE [Suspect]
     Indication: CARDIAC FAILURE
     Dosage: CODE NOT BROKEN
     Route: 048
     Dates: start: 20100429, end: 20100918
  7. ALISKIREN [Suspect]
     Indication: CARDIAC FAILURE
     Dosage: UNK
     Route: 048
     Dates: start: 20100401, end: 20100428
  8. GLICLAZIDE [Concomitant]
     Dosage: UNK
  9. ENALAPRIL MALEATE [Suspect]
     Indication: CARDIAC FAILURE
     Dosage: 10 MG, BID
     Route: 048
     Dates: start: 20100305, end: 20100331
  10. CARVEDILOL [Concomitant]
  11. ISOSORBIDE MONONITRATE [Concomitant]
  12. BLINDED ALISKIREN [Suspect]
     Indication: CARDIAC FAILURE
     Dosage: CODE NOT BROKEN
     Route: 048
     Dates: start: 20100429, end: 20100918
  13. BLINDED NO TREATMENT RECEIVED [Suspect]
     Indication: CARDIAC FAILURE
     Dosage: CODE NOT BROKEN
     Route: 048
     Dates: start: 20100429, end: 20100918
  14. ACENOCOUMAROL [Concomitant]
  15. THEOPHYLLINE [Concomitant]
  16. BLINDED NO TREATMENT RECEIVED [Suspect]
     Dosage: UNK
     Route: 048
     Dates: start: 20110831, end: 20120103
  17. SPIRONOLACTONE [Suspect]
     Dosage: UNK
     Dates: start: 20110429
  18. AMIODARONE HCL [Concomitant]
  19. ENALAPRIL MALEATE [Suspect]
     Dosage: UNK
     Route: 048
     Dates: start: 20110831, end: 20120103
  20. FUROSEMIDE [Concomitant]

REACTIONS (4)
  - BRADYARRHYTHMIA [None]
  - PNEUMONIA [None]
  - HYPERKALAEMIA [None]
  - CONCOMITANT DISEASE PROGRESSION [None]
